FAERS Safety Report 17634944 (Version 1)
Quarter: 2020Q2

REPORT INFORMATION
  Report Type: Spontaneous
  Country: US (occurrence: US)
  Receive Date: 20200407
  Receipt Date: 20200407
  Transmission Date: 20200713
  Serious: Yes (Other)
  Sender: FDA-Public Use
  Company Number: US-CIPLA LTD.-2020US02359

PATIENT

DRUGS (17)
  1. GABAPENTIN. [Suspect]
     Active Substance: GABAPENTIN
     Dosage: UNK, TAPERED OFF
     Route: 065
  2. CLOZAPINE. [Suspect]
     Active Substance: CLOZAPINE
     Indication: ANXIETY
     Dosage: UNK
     Route: 065
  3. CLOZAPINE. [Suspect]
     Active Substance: CLOZAPINE
     Dosage: TITRATION CONTINUED TO A FINAL TOTAL DAILY DOSE OF 162.5 MG
     Route: 065
  4. QUETIAPINE. [Concomitant]
     Active Substance: QUETIAPINE
     Indication: SELF-INJURIOUS IDEATION
     Dosage: 12.5 MILLIGRAM, PRN (EVERY 24 HRS)
     Route: 065
  5. MIRTAZAPINE. [Concomitant]
     Active Substance: MIRTAZAPINE
     Indication: DEPRESSION
     Dosage: 60 MILLIGRAM PER DAY, NIGHTLY
     Route: 065
  6. BUSPIRONE [Concomitant]
     Active Substance: BUSPIRONE HYDROCHLORIDE
     Indication: ANXIETY
     Dosage: 15 MILLIGRAM, QID
     Route: 065
  7. TESTOSTERONE. [Concomitant]
     Active Substance: TESTOSTERONE
     Indication: TRANSGENDER HORMONAL THERAPY
     Dosage: UNK, EVERY WEEK
     Route: 065
  8. VERAPAMIL [Concomitant]
     Active Substance: VERAPAMIL HYDROCHLORIDE
     Indication: SINUS TACHYCARDIA
     Dosage: 360 MILLIGRAM PER DAY, NIGHTLY
     Route: 065
  9. CLOZAPINE. [Suspect]
     Active Substance: CLOZAPINE
     Dosage: 6.25 MILLIGRAM, SLOW TITRATION
     Route: 065
  10. CLOZAPINE. [Suspect]
     Active Substance: CLOZAPINE
     Dosage: DOSE WAS LOWERED TO 50 MILLIGRAM
     Route: 065
  11. CLOZAPINE. [Suspect]
     Active Substance: CLOZAPINE
     Dosage: INCREASED TO 87.5 MILLIGRAM, SLOW TITRATION
     Route: 065
  12. FLUVOXAMINE [Concomitant]
     Active Substance: FLUVOXAMINE
     Indication: OBSESSIVE THOUGHTS
     Dosage: 100 MILLIGRAM PER DAY, NIGHTLY
     Route: 065
  13. FAMOTIDINE. [Concomitant]
     Active Substance: FAMOTIDINE
     Indication: GASTROOESOPHAGEAL REFLUX DISEASE
     Dosage: 20 MILLIGRAM, BID, NIGHTLY
     Route: 065
  14. GABAPENTIN. [Suspect]
     Active Substance: GABAPENTIN
     Indication: ANXIETY
     Dosage: 600 MILLIGRAM, QID, NIGHTLY
     Route: 065
  15. LORAZEPAM. [Concomitant]
     Active Substance: LORAZEPAM
     Indication: ANXIETY
     Dosage: 0.5 MILLIGRAM, PRN (TWICE DAILY)
     Route: 065
  16. LURASIDONE [Concomitant]
     Active Substance: LURASIDONE
     Indication: FLASHBACK
     Dosage: 40 MILLIGRAM PER DAY, NIGHTLY
     Route: 065
  17. FLUDROCORTISONE [Concomitant]
     Active Substance: FLUDROCORTISONE
     Indication: HYPOTENSION
     Dosage: 0.2 MILLIGRAM, BID, NIGHTLY
     Route: 065

REACTIONS (1)
  - Periorbital oedema [Recovered/Resolved]
